FAERS Safety Report 6550828-7 (Version None)
Quarter: 2010Q1

REPORT INFORMATION
  Report Type: 
  Country: None (occurrence: None)
  Receive Date: 20100125
  Receipt Date: 20100121
  Transmission Date: 20100710
  Serious: Yes (Other)
  Sender: FDA-Public Use
  Company Number: PHEH2009US15463

PATIENT
  Sex: Male

DRUGS (13)
  1. EXJADE [Suspect]
     Indication: MYELODYSPLASTIC SYNDROME
     Dosage: 1000 MG, BID
     Route: 048
     Dates: start: 20091027, end: 20091103
  2. LISINOPRIL [Concomitant]
  3. METOPROLOL [Concomitant]
  4. GLUCOSAMINE/MSM [Concomitant]
  5. FOLIC ACID [Concomitant]
  6. GEMFIBROZIL [Concomitant]
  7. LASIX [Concomitant]
  8. ALLOPURINOL [Concomitant]
  9. ASPIRIN [Concomitant]
  10. PACERONE [Concomitant]
  11. ARANESP [Concomitant]
     Dosage: UNK, UNK
     Route: 065
  12. TIZANIDINE HCL [Concomitant]
     Dosage: UNK, UNK
     Route: 065
  13. CARBIDOPA + LEVODOPA [Concomitant]
     Dosage: UNK, UNK
     Route: 065

REACTIONS (7)
  - ABDOMINAL PAIN UPPER [None]
  - ASTHENIA [None]
  - DIARRHOEA [None]
  - OPEN WOUND [None]
  - RECTAL HAEMORRHAGE [None]
  - SKIN DISCOLOURATION [None]
  - SKIN HAEMORRHAGE [None]
